FAERS Safety Report 7511451-0 (Version None)
Quarter: 2011Q2

REPORT INFORMATION
  Report Type: 
  Country: None (occurrence: None)
  Receive Date: 20110519
  Receipt Date: 20110513
  Transmission Date: 20111010
  Serious: Yes (Hospitalization)
  Sender: FDA-Public Use
  Company Number: ACY-11-03

PATIENT
  Age: 6 Year
  Sex: Male

DRUGS (2)
  1. CEFTRIAXONE [Concomitant]
  2. ACYCLOVIR [Suspect]
     Indication: HERPES ZOSTER
     Dosage: 400MG/3X'S DAY, IV
     Route: 042

REACTIONS (2)
  - RENAL FAILURE ACUTE [None]
  - CRYSTAL URINE PRESENT [None]
